FAERS Safety Report 14517591 (Version 2)
Quarter: 2018Q1

REPORT INFORMATION
  Report Type: Spontaneous
  Country: US (occurrence: US)
  Receive Date: 20180212
  Receipt Date: 20180220
  Transmission Date: 20180509
  Serious: No
  Sender: FDA-Public Use
  Company Number: US-PFIZER INC-2017485595

PATIENT
  Age: 51 Year
  Sex: Female

DRUGS (9)
  1. AMLODIPINE [Concomitant]
     Active Substance: AMLODIPINE BESYLATE
     Dosage: UNK
     Dates: start: 2006, end: 2016
  2. TAMOXIFEN [Concomitant]
     Active Substance: TAMOXIFEN
     Indication: HORMONE THERAPY
     Dosage: UNK
     Dates: start: 201306, end: 2016
  3. DOCETAXEL. [Suspect]
     Active Substance: DOCETAXEL
     Indication: CHEMOTHERAPY
     Dosage: 160 MG, EVERY 3 WEEKS (SIX CYCLES)
     Dates: start: 20130207, end: 20130606
  4. DOCETAXEL. [Suspect]
     Active Substance: DOCETAXEL
     Indication: BREAST CANCER FEMALE
  5. NEOSAR [Concomitant]
     Active Substance: CYCLOPHOSPHAMIDE
     Indication: CHEMOTHERAPY
     Dosage: UNK
  6. CYCLOPHOSPHAMIDE. [Concomitant]
     Active Substance: CYCLOPHOSPHAMIDE
     Indication: CHEMOTHERAPY
     Dosage: UNK
  7. GLYBURIDE. [Concomitant]
     Active Substance: GLYBURIDE
     Dosage: UNK
     Dates: start: 2006
  8. METFORMIN [Concomitant]
     Active Substance: METFORMIN HYDROCHLORIDE
     Dosage: UNK
     Dates: start: 2006
  9. TAXOTERE [Concomitant]
     Active Substance: DOCETAXEL
     Indication: CHEMOTHERAPY
     Dosage: UNK

REACTIONS (5)
  - Hair colour changes [Not Recovered/Not Resolved]
  - Alopecia [Not Recovered/Not Resolved]
  - Hair texture abnormal [Not Recovered/Not Resolved]
  - Hair disorder [Not Recovered/Not Resolved]
  - Madarosis [Not Recovered/Not Resolved]

NARRATIVE: CASE EVENT DATE: 201501
